APPROVED DRUG PRODUCT: LINCOMYCIN HYDROCHLORIDE
Active Ingredient: LINCOMYCIN HYDROCHLORIDE
Strength: EQ 300MG BASE/ML
Dosage Form/Route: INJECTABLE;INJECTION
Application: A216662 | Product #001
Applicant: SLATE RUN PHARMACEUTICALS LLC
Approved: Dec 21, 2022 | RLD: No | RS: No | Type: DISCN